FAERS Safety Report 10629015 (Version 2)
Quarter: 2016Q2

REPORT INFORMATION
  Report Type: Spontaneous
  Country: US (occurrence: US)
  Receive Date: 20141205
  Receipt Date: 20160617
  Transmission Date: 20160815
  Serious: No
  Sender: FDA-Public Use
  Company Number: US-BRISTOL-MYERS SQUIBB COMPANY-21268743

PATIENT
  Age: 44 Year
  Sex: Female
  Weight: 57.14 kg

DRUGS (1)
  1. KENALOG [Suspect]
     Active Substance: TRIAMCINOLONE ACETONIDE
     Indication: ARTHRITIS
     Dosage: STRENGTH: KENALOG- 10 OR KENALOG- 40.  INJECTION SPOT: LEFT KNEE.
     Route: 065
     Dates: start: 201308

REACTIONS (5)
  - Vein disorder [Unknown]
  - Pain [Unknown]
  - Inflammation [Unknown]
  - Contusion [Unknown]
  - Drug administration error [Unknown]

NARRATIVE: CASE EVENT DATE: 201401
